FAERS Safety Report 7564244-2 (Version None)
Quarter: 2011Q2

REPORT INFORMATION
  Report Type: 
  Country: None (occurrence: None)
  Receive Date: 20110622
  Receipt Date: 20110608
  Transmission Date: 20111010
  Serious: Yes (Other)
  Sender: FDA-Public Use
  Company Number: PHHY2011BR51381

PATIENT
  Sex: Male

DRUGS (14)
  1. DIOVAN [Suspect]
     Indication: HYPERTENSION
     Dosage: 1 DF, 160 MG
     Route: 048
     Dates: start: 19970101
  2. HYDROCHLOROTHIAZIDE [Concomitant]
     Indication: DIABETES MELLITUS
     Dosage: 1 DF, 25 MG
     Route: 048
     Dates: start: 20060101
  3. ATORVASTATIN [Concomitant]
     Indication: CARDIAC DISORDER
     Dosage: 1 DF, 50 MG
     Route: 048
  4. ALLOPURINOL [Concomitant]
     Dosage: 1 DF, 300 MG
  5. METFORMIN HCL [Concomitant]
     Dosage: 3 DF, 500 MG
     Route: 048
  6. NIMODIPINE [Concomitant]
     Indication: CARDIAC DISORDER
     Dosage: 1 TABLET EACH 12 HOURS
     Route: 048
     Dates: start: 20080101
  7. METFORMIN HCL [Concomitant]
     Indication: DIABETES MELLITUS
     Dosage: 2 DF, 850 MG
     Route: 048
  8. DIOSMIN W/HESPERIDIN [Concomitant]
     Indication: CARDIOVASCULAR DISORDER
     Dosage: 2 DF, 500 MG
     Route: 048
  9. METOPROLOL SUCCINATE [Concomitant]
     Indication: CARDIAC DISORDER
     Dosage: 1 DF, 20 MG
     Route: 048
  10. GINKGO BILOBA [Concomitant]
     Indication: MEMORY IMPAIRMENT
     Dosage: 2 DF, 800 MG
     Route: 048
  11. NOVOLIN 70/30 [Concomitant]
     Indication: DIABETES MELLITUS
     Dosage: 24 UNITS IN THE MORNING AND 5 UNITS AT NIGHT
  12. ASPIRIN [Concomitant]
     Indication: BLOOD DISORDER
     Dosage: 1 DF, 100 MG
     Route: 048
     Dates: start: 20060101
  13. RASILEZ [Suspect]
     Dosage: 1 DF, 300 MG A DAY
  14. XALATAN [Concomitant]
     Indication: GLAUCOMA
     Dosage: 0.005 %, QD (AT NIGHT)

REACTIONS (2)
  - BLOOD CREATININE INCREASED [None]
  - EYE HAEMORRHAGE [None]
